FAERS Safety Report 4795133-4 (Version None)
Quarter: 2005Q4

REPORT INFORMATION
  Report Type: 
  Country: None (occurrence: None)
  Receive Date: 20051006
  Receipt Date: 20051006
  Transmission Date: 20060501
  Serious: No
  Sender: FDA-Public Use
  Company Number: None

PATIENT
  Sex: Female
  Weight: 177.5832 kg

DRUGS (14)
  1. LEVAQUIN [Suspect]
     Indication: ARTHROPATHY
     Dosage: 500 MG IV ONCE DAILY [1 PO DOSE ON 9/8/05]
     Route: 042
     Dates: start: 20050905
  2. LEVAQUIN [Suspect]
     Indication: INFECTION
     Dosage: 500 MG IV ONCE DAILY [1 PO DOSE ON 9/8/05]
     Route: 042
     Dates: start: 20050905
  3. LEVAQUIN [Suspect]
     Indication: ARTHROPATHY
     Dosage: 500 MG IV ONCE DAILY [1 PO DOSE ON 9/8/05]
     Route: 042
     Dates: start: 20050907
  4. LEVAQUIN [Suspect]
     Indication: INFECTION
     Dosage: 500 MG IV ONCE DAILY [1 PO DOSE ON 9/8/05]
     Route: 042
     Dates: start: 20050907
  5. LEVAQUIN [Suspect]
     Indication: ARTHROPATHY
     Dosage: 500 MG IV ONCE DAILY [1 PO DOSE ON 9/8/05]
     Route: 042
     Dates: start: 20050908
  6. LEVAQUIN [Suspect]
     Indication: INFECTION
     Dosage: 500 MG IV ONCE DAILY [1 PO DOSE ON 9/8/05]
     Route: 042
     Dates: start: 20050908
  7. HUMALOG INSULIN SLIDING SCALE [Concomitant]
  8. AMARYL [Concomitant]
  9. DIFLUCAN [Concomitant]
  10. FUROSEMIDE [Concomitant]
  11. LOTRIMIN [Concomitant]
  12. ABILIFIY [Concomitant]
  13. LISINOPRIL [Concomitant]
  14. TUBERSOL [Concomitant]

REACTIONS (1)
  - BLOOD GLUCOSE DECREASED [None]
